APPROVED DRUG PRODUCT: NOVAMINE 11.4%
Active Ingredient: AMINO ACIDS
Strength: 11.4% (11.4GM/100ML)
Dosage Form/Route: INJECTABLE;INJECTION
Application: N017957 | Product #003
Applicant: HOSPIRA INC
Approved: Aug 9, 1982 | RLD: No | RS: No | Type: DISCN